FAERS Safety Report 9106304 (Version 1)
Quarter: 2013Q1

REPORT INFORMATION
  Report Type: Spontaneous
  Country: US (occurrence: US)
  Receive Date: 20130220
  Receipt Date: 20130220
  Transmission Date: 20140127
  Serious: No
  Sender: FDA-Public Use
  Company Number: US-ASTRAZENECA-2013SE03382

PATIENT
  Age: 69 Year
  Sex: Female
  Weight: 61.2 kg

DRUGS (7)
  1. BRILINTA [Suspect]
     Indication: ACUTE CORONARY SYNDROME
     Route: 048
     Dates: start: 20130106, end: 20130109
  2. CELEBREX [Concomitant]
  3. PROTONIX [Concomitant]
  4. SIMVASTATIN [Concomitant]
  5. FOLBEE [Concomitant]
  6. ESTRANORIS [Concomitant]
  7. ASA [Concomitant]

REACTIONS (6)
  - Pyrexia [Recovering/Resolving]
  - Back pain [Recovering/Resolving]
  - Pain [Recovering/Resolving]
  - Influenza [Unknown]
  - Nausea [Recovering/Resolving]
  - Headache [Recovering/Resolving]
